FAERS Safety Report 6905666-X (Version None)
Quarter: 2010Q3

REPORT INFORMATION
  Report Type: 
  Country: None (occurrence: None)
  Receive Date: 20100708
  Receipt Date: 20090706
  Transmission Date: 20110219
  Serious: Yes (Other)
  Sender: FDA-Public Use
  Company Number: 2009201999

PATIENT
  Age: 48 Year
  Sex: Male
  Weight: 108.8 kg

DRUGS (3)
  1. CHANTIX [Suspect]
     Indication: SMOKING CESSATION THERAPY
     Dates: start: 20090201, end: 20090101
  2. TRICOR [Concomitant]
  3. LIPITOR [Concomitant]

REACTIONS (5)
  - AGITATION [None]
  - DEPRESSION [None]
  - MOOD ALTERED [None]
  - NIGHTMARE [None]
  - SUICIDAL IDEATION [None]
